FAERS Safety Report 12573060 (Version 2)
Quarter: 2016Q4

REPORT INFORMATION
  Report Type: Spontaneous
  Country: US (occurrence: US)
  Receive Date: 20160720
  Receipt Date: 20161003
  Transmission Date: 20170207
  Serious: No
  Sender: FDA-Public Use
  Company Number: US-ASTRAZENECA-2016SE75501

PATIENT
  Age: 20 Year
  Sex: Female
  Weight: 101.2 kg

DRUGS (2)
  1. BYETTA [Suspect]
     Active Substance: EXENATIDE
     Indication: POLYCYSTIC OVARIES
     Route: 058
     Dates: start: 20160630
  2. BYETTA [Suspect]
     Active Substance: EXENATIDE
     Indication: POLYCYSTIC OVARIES
     Route: 058
     Dates: start: 2014, end: 2015

REACTIONS (4)
  - Injection site pain [Recovered/Resolved]
  - Off label use [Unknown]
  - Product use issue [Unknown]
  - Weight decreased [Not Recovered/Not Resolved]

NARRATIVE: CASE EVENT DATE: 2014
